FAERS Safety Report 7925021-3 (Version None)
Quarter: 2011Q4

REPORT INFORMATION
  Report Type: 
  Country: None (occurrence: None)
  Receive Date: 20111118
  Receipt Date: 20110331
  Transmission Date: 20120403
  Serious: No
  Sender: FDA-Public Use
  Company Number: US-AMGEN-USASP2011011938

PATIENT
  Age: 54 Year
  Sex: Female
  Weight: 67.574 kg

DRUGS (1)
  1. ENBREL [Suspect]
     Indication: PSORIASIS
     Dosage: 50 MG, QWK
     Route: 058
     Dates: start: 20100701

REACTIONS (4)
  - PNEUMONIA PRIMARY ATYPICAL [None]
  - BRONCHITIS [None]
  - HYPERTENSION [None]
  - URINARY TRACT INFECTION [None]
